FAERS Safety Report 25823791 (Version 1)
Quarter: 2025Q3

REPORT INFORMATION
  Report Type: Spontaneous
  Country: US (occurrence: US)
  Receive Date: 20250919
  Receipt Date: 20250919
  Transmission Date: 20251020
  Serious: No
  Sender: TRAVERE THERAPEUTICS
  Company Number: US-TRAVERE-2025TVT01170

PATIENT
  Age: 48 Year
  Sex: Female

DRUGS (2)
  1. FILSPARI [Suspect]
     Active Substance: SPARSENTAN
     Indication: IgA nephropathy
     Route: 048
  2. FILSPARI [Suspect]
     Active Substance: SPARSENTAN
     Route: 048
     Dates: end: 20250706

REACTIONS (13)
  - Decreased appetite [Unknown]
  - Fatigue [Unknown]
  - Fall [Unknown]
  - Abdominal pain [None]
  - Cold sweat [Recovered/Resolved]
  - Shock symptom [Recovered/Resolved]
  - Feeling cold [Unknown]
  - Tremor [Unknown]
  - Vomiting [Unknown]
  - Renal impairment [Unknown]
  - Pyrexia [Unknown]
  - Chromaturia [Recovered/Resolved]
  - Urinary tract infection [Unknown]

NARRATIVE: CASE EVENT DATE: 20250629
